FAERS Safety Report 25660165 (Version 1)
Quarter: 2025Q3

REPORT INFORMATION
  Report Type: Spontaneous
  Country: EU (occurrence: EU)
  Receive Date: 20250808
  Receipt Date: 20250808
  Transmission Date: 20251020
  Serious: Yes (Death)
  Sender: FRESENIUS KABI
  Company Number: None

PATIENT
  Age: 60 Year
  Sex: Male
  Weight: 98 kg

DRUGS (1)
  1. PROPOFOL [Suspect]
     Active Substance: PROPOFOL
     Indication: General anaesthesia
     Dosage: 12MG/KG/HOUR
     Route: 042
     Dates: start: 20250610, end: 20250610

REACTIONS (1)
  - Propofol infusion syndrome [Fatal]

NARRATIVE: CASE EVENT DATE: 20250611
